FAERS Safety Report 5516231-3 (Version None)
Quarter: 2007Q4

REPORT INFORMATION
  Report Type: 
  Country: None (occurrence: None)
  Receive Date: 20071114
  Receipt Date: 20070116
  Transmission Date: 20080405
  Serious: No
  Sender: FDA-Public Use
  Company Number: A0635109A

PATIENT
  Age: 37 Year
  Sex: Female

DRUGS (1)
  1. COMMIT [Suspect]
     Indication: DRUG USE FOR UNKNOWN INDICATION
     Dosage: 4MG SEE DOSAGE TEXT
     Route: 002
     Dates: start: 20070101, end: 20070103

REACTIONS (3)
  - POOR QUALITY SLEEP [None]
  - THROAT IRRITATION [None]
  - VOMITING [None]
